FAERS Safety Report 9179901 (Version 6)
Quarter: 2013Q2

REPORT INFORMATION
  Report Type: Spontaneous
  Country: US (occurrence: US)
  Receive Date: 20130321
  Receipt Date: 20130524
  Transmission Date: 20140414
  Serious: Yes (Hospitalization)
  Sender: FDA-Public Use
  Company Number: US-GILEAD-2013-0072072

PATIENT
  Sex: Female

DRUGS (4)
  1. LETAIRIS [Suspect]
     Indication: PULMONARY ARTERIAL HYPERTENSION
     Dosage: 10 MG, QD
     Dates: start: 20130129
  2. TYVASO [Concomitant]
  3. EPOPROSTENOL [Concomitant]
  4. EPOPROSTENOL [Concomitant]

REACTIONS (6)
  - Renal failure [Unknown]
  - Chest pain [Unknown]
  - Dyspnoea [Unknown]
  - Cardiac failure [Unknown]
  - Fluid retention [Unknown]
  - Fluid retention [Unknown]
